FAERS Safety Report 10594605 (Version 1)
Quarter: 2014Q4

REPORT INFORMATION
  Report Type: Spontaneous
  Country: US (occurrence: US)
  Receive Date: 20141120
  Receipt Date: 20141120
  Transmission Date: 20150529
  Serious: Yes (Other)
  Sender: FDA-Public Use
  Company Number: US-TEVA-453451USA

PATIENT
  Age: 6 Month
  Sex: Female

DRUGS (4)
  1. SODIUM CHLORIDE. [Concomitant]
     Active Substance: SODIUM CHLORIDE
  2. SALBUTAMOL [Concomitant]
     Active Substance: ALBUTEROL
  3. BUDESONIDE. [Suspect]
     Active Substance: BUDESONIDE
     Indication: BRONCHIOLITIS
     Dosage: INHALATION
  4. BUDESONIDE. [Suspect]
     Active Substance: BUDESONIDE
     Indication: PNEUMONIA

REACTIONS (3)
  - Chest pain [Unknown]
  - Crying [Unknown]
  - Aggression [Unknown]
